FAERS Safety Report 18618208 (Version 1)
Quarter: 2020Q4

REPORT INFORMATION
  Report Type: Spontaneous
  Country: US (occurrence: US)
  Receive Date: 20201215
  Receipt Date: 20201215
  Transmission Date: 20210114
  Serious: Yes (Hospitalization)
  Sender: FDA-Public Use
  Company Number: None

PATIENT
  Age: 48 Year
  Sex: Female

DRUGS (17)
  1. ESTRADIOL TAB 0.5MG [Concomitant]
     Active Substance: ESTRADIOL
     Dates: start: 20200829
  2. FORTEO [Suspect]
     Active Substance: TERIPARATIDE
     Indication: OSTEOPOROSIS
     Route: 058
     Dates: start: 20200424, end: 20201215
  3. BIMATOPROST SOL 0.03% [Concomitant]
     Dates: start: 20200127
  4. DESVENLAFAX TAB 50MG ER [Concomitant]
     Dates: start: 20201030
  5. LEVOTHYROXIN TAB 25MCG [Concomitant]
     Dates: start: 20200629
  6. ATORVASTATIN TAB 10MG [Concomitant]
     Dates: start: 20200601
  7. GABAPENTIN CAP 400MG [Concomitant]
     Dates: start: 20200707
  8. TACROLIMUS CAP 1MG [Concomitant]
     Active Substance: TACROLIMUS
     Dates: start: 20200518
  9. TRAMADOL HCL TAB 50MG [Concomitant]
     Dates: start: 20201117
  10. TRAZODONE [Concomitant]
     Active Substance: TRAZODONE HYDROCHLORIDE
     Dates: start: 20200928
  11. FUROSEMIDE TAB 20MG [Concomitant]
     Dates: start: 20200413
  12. ONDANSETRON TAB 4MG ODT [Concomitant]
     Dates: start: 20200702
  13. PROMETHAZINE TAB 25MG [Concomitant]
     Dates: start: 20200119
  14. ALPRAZOLAM TAB 0.25MG [Concomitant]
     Dates: start: 20201026
  15. BUSPIRONE [Concomitant]
     Active Substance: BUSPIRONE HYDROCHLORIDE
     Dates: start: 20201209
  16. OMEPRAZOLE CAP 20MG [Concomitant]
     Active Substance: OMEPRAZOLE
     Dates: start: 20201125
  17. PRAZOSIN HCL CAP 1MG [Concomitant]
     Dates: start: 20200928

REACTIONS (3)
  - Hepatic infection [None]
  - Bacterial infection [None]
  - Hepatic function abnormal [None]

NARRATIVE: CASE EVENT DATE: 20201124
